FAERS Safety Report 6614928-5 (Version None)
Quarter: 2010Q1

REPORT INFORMATION
  Report Type: 
  Country: None (occurrence: None)
  Receive Date: 20100305
  Receipt Date: 20100225
  Transmission Date: 20100710
  Serious: Yes (Death)
  Sender: FDA-Public Use
  Company Number: GB-SP-2009-05462

PATIENT
  Age: 75 Year
  Sex: Male

DRUGS (1)
  1. IMMUCYST [Suspect]
     Indication: DRUG USE FOR UNKNOWN INDICATION
     Dosage: NOT REPORTED
     Route: 043
     Dates: start: 20080601, end: 20091126

REACTIONS (1)
  - ACUTE MYOCARDIAL INFARCTION [None]
